FAERS Safety Report 25640805 (Version 5)
Quarter: 2025Q4

REPORT INFORMATION
  Report Type: Report from Study
  Country: US (occurrence: US)
  Receive Date: 20250804
  Receipt Date: 20251103
  Transmission Date: 20260117
  Serious: Yes (Other)
  Sender: ABBVIE
  Company Number: US-ABBVIE-6354173

PATIENT
  Age: 63 Year
  Sex: Female

DRUGS (2)
  1. SKYRIZI [Suspect]
     Active Substance: RISANKIZUMAB-RZAA
     Indication: Psoriasis
     Route: 058
     Dates: start: 20230310
  2. SKYRIZI [Suspect]
     Active Substance: RISANKIZUMAB-RZAA
     Route: 058
     Dates: start: 202412

REACTIONS (14)
  - Loss of consciousness [Unknown]
  - Hyperphagia [Unknown]
  - Fall [Recovered/Resolved]
  - Concussion [Unknown]
  - Rib fracture [Unknown]
  - Headache [Unknown]
  - Psoriasis [Recovering/Resolving]
  - Fatigue [Unknown]
  - Cerebral haemorrhage [Unknown]
  - Weight increased [Not Recovered/Not Resolved]
  - Memory impairment [Recovering/Resolving]
  - Fall [Not Recovered/Not Resolved]
  - Head injury [Unknown]
  - Head injury [Recovered/Resolved]

NARRATIVE: CASE EVENT DATE: 20250101
